FAERS Safety Report 5415139-1 (Version None)
Quarter: 2007Q3

REPORT INFORMATION
  Report Type: 
  Country: None (occurrence: None)
  Receive Date: 20070815
  Receipt Date: 20070622
  Transmission Date: 20080115
  Serious: No
  Sender: FDA-Public Use
  Company Number: A0660787A

PATIENT
  Age: 80 Year
  Sex: Female

DRUGS (11)
  1. COREG CR [Suspect]
     Dosage: 80MG PER DAY
     Route: 048
     Dates: start: 20070620
  2. COREG [Suspect]
     Dosage: 37.5MG TWICE PER DAY
     Route: 048
     Dates: end: 20070620
  3. MONOPRIL [Concomitant]
  4. WARFARIN SODIUM [Concomitant]
  5. ZOLOFT [Concomitant]
  6. PRAVACHOL [Concomitant]
  7. LEVOXYL [Concomitant]
  8. AMIODARONE HCL [Concomitant]
  9. UNKNOWN DRUG FOR ANXIETY [Concomitant]
  10. INSULIN [Concomitant]
  11. DIGOXIN [Concomitant]

REACTIONS (8)
  - ANOREXIA [None]
  - ASTHENIA [None]
  - CHEST DISCOMFORT [None]
  - MALAISE [None]
  - MEDIASTINAL DISORDER [None]
  - MEDICATION ERROR [None]
  - OVERDOSE [None]
  - WEIGHT DECREASED [None]
